FAERS Safety Report 10300263 (Version 1)
Quarter: 2014Q3

REPORT INFORMATION
  Report Type: Spontaneous
  Country: RU (occurrence: RU)
  Receive Date: 20140711
  Receipt Date: 20140711
  Transmission Date: 20150326
  Serious: Yes (Other)
  Sender: FDA-Public Use
  Company Number: RU-ABBVIE-14K-251-1257647-00

PATIENT
  Age: 6 Year
  Sex: Male

DRUGS (2)
  1. DEPAKENE [Suspect]
     Active Substance: VALPROIC ACID
  2. DEPAKENE [Suspect]
     Active Substance: VALPROIC ACID
     Indication: EPILEPSY
     Dates: start: 201005, end: 201006

REACTIONS (6)
  - Adverse event [Recovered/Resolved]
  - Slow response to stimuli [Recovered/Resolved]
  - Movement disorder [Recovered/Resolved]
  - Epilepsy [Recovered/Resolved]
  - Sluggishness [Recovered/Resolved]
  - Hypophagia [Recovered/Resolved]
